FAERS Safety Report 5213546-3 (Version None)
Quarter: 2007Q1

REPORT INFORMATION
  Report Type: 
  Country: None (occurrence: None)
  Receive Date: 20070119
  Receipt Date: 20070109
  Transmission Date: 20070707
  Serious: Yes (Hospitalization, Disabling)
  Sender: FDA-Public Use
  Company Number: 2007AC00055

PATIENT
  Sex: Female

DRUGS (3)
  1. ATACAND [Suspect]
     Indication: ESSENTIAL HYPERTENSION
     Route: 048
     Dates: end: 20061107
  2. OMNITRAST [Interacting]
     Indication: OPEN WOUND
     Route: 042
     Dates: start: 20061106, end: 20061106
  3. SEGURIL [Concomitant]
     Indication: OEDEMA
     Route: 048
     Dates: end: 20061107

REACTIONS (4)
  - DRUG INTERACTION [None]
  - HYPERKALAEMIA [None]
  - RENAL FAILURE ACUTE [None]
  - RENAL FAILURE CHRONIC [None]
